FAERS Safety Report 15312884 (Version 4)
Quarter: 2019Q1

REPORT INFORMATION
  Report Type: Report from Study
  Country: US (occurrence: US)
  Receive Date: 20180823
  Receipt Date: 20190211
  Transmission Date: 20190417
  Serious: No
  Sender: FDA-Public Use
  Company Number: US-ALEXION PHARMACEUTICALS INC.-A201810677

PATIENT
  Sex: Female

DRUGS (1)
  1. SOLIRIS [Suspect]
     Active Substance: ECULIZUMAB
     Indication: PRODUCT USED FOR UNKNOWN INDICATION
     Dosage: UNK
     Route: 065

REACTIONS (7)
  - Eyelid ptosis [Unknown]
  - Somnolence [Unknown]
  - Pain [Unknown]
  - Bone pain [Unknown]
  - Incorrect dose administered by product [Unknown]
  - Arthralgia [Unknown]
  - Fatigue [Unknown]
